FAERS Safety Report 24382863 (Version 1)
Quarter: 2024Q4

REPORT INFORMATION
  Report Type: Spontaneous
  Country: US (occurrence: US)
  Receive Date: 20241001
  Receipt Date: 20241001
  Transmission Date: 20250114
  Serious: Yes (Hospitalization)
  Sender: LUOXIN AUROVITAS PHARMA(CHENGDU)
  Company Number: US-LUOXIN-LUX-2024-US-LIT-00054

PATIENT
  Age: 64 Year
  Sex: Male

DRUGS (17)
  1. ALBUTEROL SULFATE\IPRATROPIUM BROMIDE [Suspect]
     Active Substance: ALBUTEROL SULFATE\IPRATROPIUM BROMIDE
     Indication: Chronic hepatitis C
     Dosage: INHALER
  2. ALBUTEROL SULFATE [Suspect]
     Active Substance: ALBUTEROL SULFATE
     Indication: Chronic hepatitis C
     Dosage: INHALER
  3. SOFOSBUVIR\VELPATASVIR [Suspect]
     Active Substance: SOFOSBUVIR\VELPATASVIR
     Indication: Chronic hepatitis C
     Dosage: 400MG/100MG
     Route: 065
  4. GABAPENTIN [Suspect]
     Active Substance: GABAPENTIN
     Indication: Chronic hepatitis C
     Route: 065
  5. BUPRENORPHINE\NALOXONE [Suspect]
     Active Substance: BUPRENORPHINE\NALOXONE
     Indication: Drug use disorder
     Dosage: 8MG/2MG
     Route: 060
  6. PANTOPRAZOLE [Suspect]
     Active Substance: PANTOPRAZOLE
     Indication: Gastrooesophageal reflux disease
     Route: 048
  7. FUROSEMIDE [Suspect]
     Active Substance: FUROSEMIDE
     Indication: Hepatic cirrhosis
     Route: 065
  8. FUROSEMIDE [Suspect]
     Active Substance: FUROSEMIDE
     Indication: Hypertension
  9. POTASSIUM CHLORIDE [Suspect]
     Active Substance: POTASSIUM CHLORIDE
     Indication: Tobacco user
     Route: 065
  10. BUPROPION [Suspect]
     Active Substance: BUPROPION
     Indication: Tobacco user
     Route: 065
  11. TESTOSTERONE [Suspect]
     Active Substance: TESTOSTERONE
     Indication: Erectile dysfunction
     Route: 030
  12. ACYCLOVIR [Suspect]
     Active Substance: ACYCLOVIR
     Indication: Deficiency anaemia
     Route: 065
  13. DOCUSATE [Suspect]
     Active Substance: DOCUSATE
     Indication: Gastrooesophageal reflux disease
     Route: 065
  14. CHOLECALCIFEROL [Suspect]
     Active Substance: CHOLECALCIFEROL
     Indication: Vitamin D deficiency
     Dosage: 2000 UNITS
     Route: 065
  15. SILDENAFIL [Suspect]
     Active Substance: SILDENAFIL
     Indication: Erectile dysfunction
     Route: 065
  16. FERROUS SULFATE [Suspect]
     Active Substance: FERROUS SULFATE
     Indication: Iron deficiency anaemia
     Route: 065
  17. OMEPRAZOLE [Concomitant]
     Active Substance: OMEPRAZOLE
     Indication: Chronic hepatitis C
     Route: 065

REACTIONS (2)
  - Mental status changes [Unknown]
  - Drug interaction [Unknown]
